FAERS Safety Report 5826732-6 (Version None)
Quarter: 2008Q3

REPORT INFORMATION
  Report Type: 
  Country: None (occurrence: None)
  Receive Date: 20080728
  Receipt Date: 20080728
  Transmission Date: 20090109
  Serious: Yes (Life-Threatening, Hospitalization)
  Sender: FDA-Public Use
  Company Number: None

PATIENT
  Age: 44 Year
  Sex: Male
  Weight: 99.7913 kg

DRUGS (1)
  1. PRAVASTATIN [Suspect]
     Indication: HYPERLIPIDAEMIA
     Dosage: 40 MG DAILY PO
     Route: 048
     Dates: start: 20080714, end: 20080724

REACTIONS (7)
  - BONE PAIN [None]
  - HEPATIC ENZYME INCREASED [None]
  - LETHARGY [None]
  - MALAISE [None]
  - PAIN [None]
  - PARALYSIS [None]
  - SOFT TISSUE DISORDER [None]
